FAERS Safety Report 13957839 (Version 1)
Quarter: 2017Q3

REPORT INFORMATION
  Report Type: Spontaneous
  Country: US (occurrence: US)
  Receive Date: 20170911
  Receipt Date: 20170911
  Transmission Date: 20171128
  Serious: No
  Sender: FDA-Public Use
  Company Number: US-ROCHE-1130714

PATIENT
  Sex: Male

DRUGS (13)
  1. ACTONEL [Concomitant]
     Active Substance: RISEDRONATE SODIUM
  2. CLINDAMYCIN. [Concomitant]
     Active Substance: CLINDAMYCIN
     Indication: SINUSITIS
  3. PREDNISONE. [Concomitant]
     Active Substance: PREDNISONE
  4. CELLCEPT [Concomitant]
     Active Substance: MYCOPHENOLATE MOFETIL\MYCOPHENOLATE MOFETIL HYDROCHLORIDE
  5. RITUXAN [Suspect]
     Active Substance: RITUXIMAB
     Indication: GRANULOMATOSIS WITH POLYANGIITIS
     Route: 065
  6. RITUXAN [Suspect]
     Active Substance: RITUXIMAB
     Indication: GRANULOMATOSIS WITH POLYANGIITIS
     Route: 065
     Dates: start: 200505
  7. RITUXAN [Suspect]
     Active Substance: RITUXIMAB
     Indication: PULMONARY GRANULOMA
     Route: 065
     Dates: start: 20050604
  8. ACTONEL [Concomitant]
     Active Substance: RISEDRONATE SODIUM
  9. RITUXAN [Suspect]
     Active Substance: RITUXIMAB
     Indication: OFF LABEL USE
  10. TYLENOL [Concomitant]
     Active Substance: ACETAMINOPHEN
  11. CYTOXAN [Concomitant]
     Active Substance: CYCLOPHOSPHAMIDE
  12. PERCOCET [Concomitant]
     Active Substance: ACETAMINOPHEN\OXYCODONE HYDROCHLORIDE
  13. GUAIFENESIN. [Concomitant]
     Active Substance: GUAIFENESIN

REACTIONS (4)
  - Fatigue [Unknown]
  - Eye pain [Unknown]
  - Arthralgia [Unknown]
  - Sleep disorder [Unknown]
